FAERS Safety Report 17197126 (Version 2)
Quarter: 2020Q2

REPORT INFORMATION
  Report Type: Spontaneous
  Country: US (occurrence: US)
  Receive Date: 20191224
  Receipt Date: 20200403
  Transmission Date: 20200713
  Serious: No
  Sender: FDA-Public Use
  Company Number: US-ASTRAZENECA-2019SF83294

PATIENT
  Weight: 7.5 kg

DRUGS (1)
  1. SYNAGIS [Suspect]
     Active Substance: PALIVIZUMAB
     Dosage: 15MG/ML MONTHLY
     Route: 030

REACTIONS (3)
  - Wheezing [Unknown]
  - Nasopharyngitis [Unknown]
  - Malaise [Unknown]
